FAERS Safety Report 17998948 (Version 1)
Quarter: 2020Q3

REPORT INFORMATION
  Report Type: Spontaneous
  Country: US (occurrence: US)
  Receive Date: 20200708
  Receipt Date: 20200708
  Transmission Date: 20201103
  Serious: No
  Sender: FDA-Public Use
  Company Number: None

PATIENT

DRUGS (1)
  1. MIRTAZAPINE. [Suspect]
     Active Substance: MIRTAZAPINE
     Route: 048
     Dates: start: 20190708, end: 20190709

REACTIONS (4)
  - Vomiting [None]
  - Agitation [None]
  - Confusional state [None]
  - Gait disturbance [None]

NARRATIVE: CASE EVENT DATE: 20190708
